FAERS Safety Report 18135195 (Version 3)
Quarter: 2020Q4

REPORT INFORMATION
  Report Type: Spontaneous
  Country: US (occurrence: US)
  Receive Date: 20200811
  Receipt Date: 20201207
  Transmission Date: 20210113
  Serious: Yes (Hospitalization, Other)
  Sender: FDA-Public Use
  Company Number: US-PFIZER INC-2020304486

PATIENT
  Sex: Female

DRUGS (2)
  1. PHENYTOIN SODIUM. [Suspect]
     Active Substance: PHENYTOIN SODIUM
     Indication: SEIZURE
     Dosage: 100 MG (ALTERNATES 3 A DAY THEN 2 A DAY)
     Route: 048
  2. PHENYTOIN SODIUM. [Suspect]
     Active Substance: PHENYTOIN SODIUM
     Indication: EPILEPSY

REACTIONS (7)
  - Fall [Unknown]
  - Suicidal ideation [Recovered/Resolved]
  - Product dispensing issue [Unknown]
  - Head injury [Unknown]
  - Drug hypersensitivity [Recovered/Resolved]
  - Depersonalisation/derealisation disorder [Recovered/Resolved]
  - Crying [Recovered/Resolved]

NARRATIVE: CASE EVENT DATE: 2018
